FAERS Safety Report 19810372 (Version 1)
Quarter: 2021Q3

REPORT INFORMATION
  Report Type: Spontaneous
  Country: CA (occurrence: CA)
  Receive Date: 20210909
  Receipt Date: 20210909
  Transmission Date: 20211014
  Serious: Yes (Death, Hospitalization)
  Sender: FDA-Public Use
  Company Number: CA-ACCORD-238255

PATIENT
  Age: 62 Year
  Sex: Male
  Weight: 110 kg

DRUGS (31)
  1. AMLODIPINE [Concomitant]
     Active Substance: AMLODIPINE BESYLATE
  2. INSULIN [Concomitant]
     Active Substance: INSULIN NOS
  3. LORAZEPAM. [Concomitant]
     Active Substance: LORAZEPAM
  4. METOCLOPRAMIDE. [Concomitant]
     Active Substance: METOCLOPRAMIDE
  5. SULFAMETHOXAZOLE/TRIMETHOPRIM [Concomitant]
     Active Substance: SULFAMETHOXAZOLE\TRIMETHOPRIM
  6. CELECOXIB. [Concomitant]
     Active Substance: CELECOXIB
  7. DEXAMETHASONE. [Concomitant]
     Active Substance: DEXAMETHASONE
  8. PHOSPHORIC ACID [Concomitant]
     Active Substance: PHOSPHORIC ACID
  9. POSANOL [Concomitant]
     Active Substance: POSACONAZOLE
  10. PARACETAMOL [Concomitant]
     Active Substance: ACETAMINOPHEN
  11. JANUMET [Concomitant]
     Active Substance: METFORMIN HYDROCHLORIDE\SITAGLIPTIN PHOSPHATE
  12. MAGNESIUM HYDROXIDE. [Concomitant]
     Active Substance: MAGNESIUM HYDROXIDE
  13. ONDANSETRON [Concomitant]
     Active Substance: ONDANSETRON
  14. QUETIAPINE/QUETIAPINE FUMARATE [Concomitant]
     Active Substance: QUETIAPINE FUMARATE
  15. THIAMINE. [Concomitant]
     Active Substance: THIAMINE
  16. CODEINE [Concomitant]
     Active Substance: CODEINE
  17. ACETYLSALICYLIC ACID [Concomitant]
     Active Substance: ASPIRIN
  18. ENOXAPARIN [Concomitant]
     Active Substance: ENOXAPARIN
  19. FOLINIC ACID [Concomitant]
     Active Substance: LEUCOVORIN
  20. PIOGLITAZONE/PIOGLITAZONE HYDROCHLORIDE [Concomitant]
     Active Substance: PIOGLITAZONE HYDROCHLORIDE
  21. METHOTREXATE. [Suspect]
     Active Substance: METHOTREXATE
     Indication: NON-HODGKIN^S LYMPHOMA
  22. SODIUM PHOSPHATE/SODIUM PHOSPHATE MONOBASIC (AN [Concomitant]
     Dosage: SOLUTION ORAL
  23. SODIUM BICARBONATE. [Concomitant]
     Active Substance: SODIUM BICARBONATE
  24. VORAXAZE [Concomitant]
     Active Substance: GLUCARPIDASE
  25. FUROSEMIDE. [Concomitant]
     Active Substance: FUROSEMIDE
  26. HALOPERIDOL. [Concomitant]
     Active Substance: HALOPERIDOL
  27. MEROPENEM. [Concomitant]
     Active Substance: MEROPENEM
     Route: 042
  28. METOPROLOL. [Concomitant]
     Active Substance: METOPROLOL
  29. MACROGOL [Concomitant]
     Active Substance: POLYETHYLENE GLYCOLS
  30. POTASSIUM [Concomitant]
     Active Substance: POTASSIUM
  31. ROSUVASTATIN/ROSUVASTATIN CALCIUM [Concomitant]
     Active Substance: ROSUVASTATIN CALCIUM

REACTIONS (7)
  - Encephalopathy [Fatal]
  - Non-Hodgkin^s lymphoma [Fatal]
  - Renal failure [Fatal]
  - Staphylococcal infection [Fatal]
  - Staphylococcal bacteraemia [Fatal]
  - Toxicity to various agents [Fatal]
  - Disease progression [Fatal]
